FAERS Safety Report 9399021 (Version 2)
Quarter: 2013Q3

REPORT INFORMATION
  Report Type: Spontaneous
  Country: US (occurrence: US)
  Receive Date: 20130714
  Receipt Date: 20130913
  Transmission Date: 20140515
  Serious: Yes (Death, Other)
  Sender: FDA-Public Use
  Company Number: US-JNJFOC-20130707328

PATIENT
  Age: 6 Month
  Sex: 0

DRUGS (1)
  1. IBUPROFEN [Suspect]
     Indication: PATENT DUCTUS ARTERIOSUS
     Dosage: THREE DOSES OF 10MG/KG, 5MG/KG, 5MG/KG AT 24 HOUR INTERVALS
     Route: 065
     Dates: start: 200511, end: 200711

REACTIONS (5)
  - Death [Fatal]
  - Necrotising colitis [Unknown]
  - Intraventricular haemorrhage [Unknown]
  - Intestinal perforation [Unknown]
  - Blood creatinine increased [Unknown]
